FAERS Safety Report 9321934 (Version 2)
Quarter: 2013Q2

REPORT INFORMATION
  Report Type: Spontaneous
  Country: CN (occurrence: CN)
  Receive Date: 20130531
  Receipt Date: 20130603
  Transmission Date: 20140414
  Serious: No
  Sender: FDA-Public Use
  Company Number: CN-JNJFOC-20130512805

PATIENT
  Sex: 0

DRUGS (1)
  1. DUROGESIC [Suspect]
     Indication: CANCER PAIN
     Route: 062

REACTIONS (10)
  - Inadequate analgesia [Unknown]
  - Adverse reaction [Unknown]
  - Dizziness [Unknown]
  - Somnolence [Unknown]
  - Lethargy [Unknown]
  - Nausea [Unknown]
  - Vomiting [Unknown]
  - Constipation [Unknown]
  - Urticaria [Unknown]
  - Drug prescribing error [Unknown]
